FAERS Safety Report 6445213-2 (Version None)
Quarter: 2009Q4

REPORT INFORMATION
  Report Type: 
  Country: None (occurrence: None)
  Receive Date: 20091112
  Receipt Date: 20091030
  Transmission Date: 20100525
  Serious: Yes (Other)
  Sender: FDA-Public Use
  Company Number: 2009-04581

PATIENT
  Sex: 0

DRUGS (2)
  1. VELCADE [Suspect]
     Indication: MULTIPLE MYELOMA
     Dosage: INTRAVENOUS
     Route: 042
  2. LENALIDOMIDE(LENALIDOMIDE) CAPSULE [Suspect]
     Indication: MULTIPLE MYELOMA
     Dosage: ORAL
     Route: 048

REACTIONS (1)
  - SKIN INFECTION [None]
